FAERS Safety Report 16858800 (Version 2)
Quarter: 2019Q3

REPORT INFORMATION
  Report Type: Spontaneous
  Country: DE (occurrence: DE)
  Receive Date: 20190926
  Receipt Date: 20190926
  Transmission Date: 20191005
  Serious: Yes (Death, Hospitalization)
  Sender: FDA-Public Use
  Company Number: PHHY2019DE221422

PATIENT
  Age: 67 Year
  Sex: Female
  Weight: 84 kg

DRUGS (5)
  1. DOCETAXEL. [Suspect]
     Active Substance: DOCETAXEL
     Indication: BREAST CANCER METASTATIC
     Dosage: 100 MG/KG, UNK
     Route: 042
     Dates: start: 20100827, end: 20101008
  2. ZOMETA [Suspect]
     Active Substance: ZOLEDRONIC ACID
     Indication: BREAST CANCER METASTATIC
     Dosage: UNK
     Route: 042
     Dates: start: 2008, end: 201008
  3. ZOMETA [Suspect]
     Active Substance: ZOLEDRONIC ACID
     Dosage: 4 MG, UNK
     Route: 042
     Dates: start: 20100827, end: 20110105
  4. BEVACIZUMAB. [Suspect]
     Active Substance: BEVACIZUMAB
     Indication: BREAST CANCER METASTATIC
     Dosage: 15 MG/KG, Q3W
     Route: 042
     Dates: start: 20100827, end: 20110105
  5. DOCETAXEL. [Suspect]
     Active Substance: DOCETAXEL
     Dosage: 75 MG/KG, Q3W
     Route: 042
     Dates: start: 20101116, end: 20110105

REACTIONS (6)
  - Gallbladder rupture [Fatal]
  - Cholecystitis infective [Fatal]
  - General physical health deterioration [Not Recovered/Not Resolved]
  - Cholelithiasis [Recovered/Resolved]
  - Septic shock [Fatal]
  - Cholecystitis [Recovering/Resolving]

NARRATIVE: CASE EVENT DATE: 201011
